FAERS Safety Report 7187796-3 (Version None)
Quarter: 2010Q4

REPORT INFORMATION
  Report Type: 
  Country: None (occurrence: None)
  Receive Date: 20101222
  Receipt Date: 20101209
  Transmission Date: 20110411
  Serious: Yes (Hospitalization)
  Sender: FDA-Public Use
  Company Number: IN-MYLANLABS-2010S1022934

PATIENT
  Age: 23 Year
  Sex: Female

DRUGS (3)
  1. ARIPIPRAZOLE [Interacting]
     Indication: AGITATION
     Route: 065
  2. ESCITALOPRAM OXALATE [Suspect]
     Route: 065
  3. CLONAZEPAM [Concomitant]
     Route: 065

REACTIONS (3)
  - DRUG INTERACTION [None]
  - DYSTONIA [None]
  - TEMPOROMANDIBULAR JOINT SYNDROME [None]
